FAERS Safety Report 7660523-9 (Version None)
Quarter: 2011Q3

REPORT INFORMATION
  Report Type: 
  Country: None (occurrence: None)
  Receive Date: 20110805
  Receipt Date: 20110804
  Transmission Date: 20111222
  Serious: Yes (Hospitalization)
  Sender: FDA-Public Use
  Company Number: FR-MERCK-1107USA01762

PATIENT
  Age: 68 Year
  Sex: Female

DRUGS (1)
  1. SINGULAIR [Suspect]
     Indication: ASTHMA
     Route: 048
     Dates: start: 20090101, end: 20110501

REACTIONS (2)
  - VASCULITIS [None]
  - ALLERGIC GRANULOMATOUS ANGIITIS [None]
